FAERS Safety Report 4418319-7 (Version None)
Quarter: 2004Q3

REPORT INFORMATION
  Report Type: 
  Country: None (occurrence: None)
  Receive Date: 20040805
  Receipt Date: 20040805
  Transmission Date: 20050211
  Serious: Yes (Hospitalization, Other)
  Sender: FDA-Public Use
  Company Number: None

PATIENT
  Age: 60 Year
  Sex: Female
  Weight: 98 kg

DRUGS (8)
  1. INTEGRILIN [Suspect]
     Indication: ANTIPLATELET THERAPY
     Dosage: 2(9.0 ML BOLUSES) 16.0 ML/HR IV
     Route: 042
     Dates: start: 20040708, end: 20040709
  2. FENTANYL [Concomitant]
  3. MIDAZOLAM [Concomitant]
  4. NITROGLYCERIN [Concomitant]
  5. CEFAZOLIN [Concomitant]
  6. ASPIRIN [Concomitant]
  7. PEPCID [Concomitant]
  8. PLAVIX [Concomitant]

REACTIONS (2)
  - BLOODY DISCHARGE [None]
  - POST PROCEDURAL COMPLICATION [None]
